FAERS Safety Report 4728928-3 (Version None)
Quarter: 2005Q3

REPORT INFORMATION
  Report Type: 
  Country: None (occurrence: None)
  Receive Date: 20050729
  Receipt Date: 20050518
  Transmission Date: 20060218
  Serious: Yes (Life-Threatening, Hospitalization, Other)
  Sender: FDA-Public Use
  Company Number: US-GLAXOSMITHKLINE-A0559242A

PATIENT
  Age: 52 Year
  Sex: Male
  Weight: 88.6 kg

DRUGS (1)
  1. IMITREX [Suspect]
     Indication: MIGRAINE
     Dosage: 50MG UNKNOWN
     Route: 048

REACTIONS (4)
  - ABDOMINAL PAIN [None]
  - GASTROINTESTINAL PAIN [None]
  - INTESTINAL ISCHAEMIA [None]
  - SMALL INTESTINAL OBSTRUCTION [None]
